FAERS Safety Report 15691560 (Version 2)
Quarter: 2018Q4

REPORT INFORMATION
  Report Type: Spontaneous
  Country: JP (occurrence: JP)
  Receive Date: 20181205
  Receipt Date: 20181205
  Transmission Date: 20190205
  Serious: Yes (Other)
  Sender: FDA-Public Use
  Company Number: JP-BAYER-2018-220531

PATIENT
  Age: 80 Year
  Sex: Male

DRUGS (2)
  1. BAYASPIRIN 100 MG [Suspect]
     Active Substance: ASPIRIN
     Route: 048
  2. WARFARIN POTASSIUM [Interacting]
     Active Substance: WARFARIN POTASSIUM
     Route: 048

REACTIONS (4)
  - Labelled drug-drug interaction medication error [None]
  - Traumatic haematoma [None]
  - Subcutaneous haematoma [None]
  - Haemorrhagic diathesis [None]
